FAERS Safety Report 6110237-1 (Version None)
Quarter: 2009Q1

REPORT INFORMATION
  Report Type: 
  Country: None (occurrence: None)
  Receive Date: 20090310
  Receipt Date: 20090303
  Transmission Date: 20090719
  Serious: Yes (Death)
  Sender: FDA-Public Use
  Company Number: MX-AVENTIS-200912041GDDC

PATIENT
  Age: 65 Year
  Sex: Male
  Weight: 65 kg

DRUGS (5)
  1. TAXOTERE [Suspect]
     Indication: NON-SMALL CELL LUNG CANCER
     Route: 042
     Dates: start: 20081230, end: 20090120
  2. CISPLATIN [Concomitant]
     Indication: NON-SMALL CELL LUNG CANCER
     Dosage: DOSE: UNK
  3. GEMCITABINE HCL [Concomitant]
     Indication: NON-SMALL CELL LUNG CANCER
     Dosage: DOSE: UNK
  4. GLIBENCLAMIDE [Concomitant]
     Route: 048
  5. METFORMIN HCL [Concomitant]
     Route: 048

REACTIONS (2)
  - DYSPNOEA [None]
  - PNEUMONITIS [None]
